FAERS Safety Report 4945406-7 (Version None)
Quarter: 2006Q1

REPORT INFORMATION
  Report Type: 
  Country: None (occurrence: None)
  Receive Date: 20060316
  Receipt Date: 20060307
  Transmission Date: 20060701
  Serious: Yes (Other)
  Sender: FDA-Public Use
  Company Number: PT-GLAXOSMITHKLINE-B0415350A

PATIENT
  Age: 37 Year
  Sex: Male

DRUGS (4)
  1. NIQUITIN CQ 21MG [Suspect]
     Route: 062
     Dates: start: 20060209, end: 20060211
  2. SOBREROL [Concomitant]
  3. CARBOCYSTEINE [Concomitant]
     Route: 048
  4. DEXIBUPROFEN [Concomitant]
     Route: 048
     Dates: start: 20060101

REACTIONS (6)
  - APPLICATION SITE DERMATITIS [None]
  - APPLICATION SITE ERYTHEMA [None]
  - APPLICATION SITE VESICLES [None]
  - BLOOD PRESSURE INCREASED [None]
  - EPISTAXIS [None]
  - TACHYCARDIA [None]
